FAERS Safety Report 9201843 (Version 2)
Quarter: 2013Q2

REPORT INFORMATION
  Report Type: Report from Study
  Country: FI (occurrence: FI)
  Receive Date: 20130401
  Receipt Date: 20130404
  Transmission Date: 20140414
  Serious: Yes (Death)
  Sender: FDA-Public Use
  Company Number: FI-ROCHE-1207652

PATIENT
  Sex: Male

DRUGS (2)
  1. AVASTIN [Suspect]
     Indication: COLON CANCER
     Route: 065
     Dates: start: 20110407
  2. AVASTIN [Suspect]
     Dosage: LAST DOSE TAKEN 10/APR/2012
     Route: 065
     Dates: start: 20120410

REACTIONS (1)
  - Death [Fatal]
